FAERS Safety Report 18495010 (Version 1)
Quarter: 2020Q4

REPORT INFORMATION
  Report Type: Spontaneous
  Country: US (occurrence: US)
  Receive Date: 20201111
  Receipt Date: 20201111
  Transmission Date: 20210114
  Serious: Yes (Death)
  Sender: FDA-Public Use
  Company Number: None

PATIENT
  Age: 74 Year
  Sex: Male

DRUGS (16)
  1. ESBRIET [Suspect]
     Active Substance: PIRFENIDONE
     Indication: IDIOPATHIC PULMONARY FIBROSIS
     Route: 048
     Dates: start: 20200320, end: 20201103
  2. ATORVASTATIN [Concomitant]
     Active Substance: ATORVASTATIN
  3. BUPROON HCL XL [Concomitant]
  4. MORPHINE SUL [Concomitant]
     Active Substance: MORPHINE SULFATE
  5. AZITHROMYCIN ANHYDROUS. [Concomitant]
     Active Substance: AZITHROMYCIN ANHYDROUS
  6. MIRTAZAPINE. [Concomitant]
     Active Substance: MIRTAZAPINE
  7. CARVEDILOL. [Concomitant]
     Active Substance: CARVEDILOL
  8. HYDROCO/APP [Concomitant]
  9. FLUTICASONE. [Concomitant]
     Active Substance: FLUTICASONE
  10. VIRTUSSIN AC [Concomitant]
     Active Substance: CODEINE PHOSPHATE\GUAIFENESIN
  11. CITALOPRAM [Concomitant]
     Active Substance: CITALOPRAM HYDROBROMIDE
  12. DULCOLAX NOS [Concomitant]
     Active Substance: BISACODYL OR DOCUSATE SODIUM
  13. MEGESTEROL AC [Concomitant]
  14. ATROPINE OP [Concomitant]
  15. BENZONATATE. [Concomitant]
     Active Substance: BENZONATATE
  16. LORAZEPAM. [Concomitant]
     Active Substance: LORAZEPAM

REACTIONS (1)
  - Death [None]

NARRATIVE: CASE EVENT DATE: 20201103
